FAERS Safety Report 9840412 (Version 1)
Quarter: 2014Q1

REPORT INFORMATION
  Report Type: Spontaneous
  Country: US (occurrence: None)
  Receive Date: 20140121
  Receipt Date: 20140121
  Transmission Date: 20141002
  Serious: No
  Sender: FDA-Public Use
  Company Number: None

PATIENT
  Sex: Male
  Weight: 76.2 kg

DRUGS (2)
  1. OXYCONTIN [Suspect]
     Indication: LEG AMPUTATION
     Route: 048
     Dates: start: 2012, end: 2013
  2. OXYCONTIN [Suspect]
     Indication: AMPUTATION STUMP PAIN
     Route: 048
     Dates: start: 2012, end: 2013

REACTIONS (2)
  - Drug ineffective [None]
  - Product substitution issue [None]
